FAERS Safety Report 7126176-3 (Version None)
Quarter: 2010Q4

REPORT INFORMATION
  Report Type: 
  Country: None (occurrence: None)
  Receive Date: 20101129
  Receipt Date: 20101122
  Transmission Date: 20110411
  Serious: No
  Sender: FDA-Public Use
  Company Number: US-B.I. PHARMACEUTICALS,INC./RIDGEFIELD-2008-BP-03642BP

PATIENT
  Sex: Female

DRUGS (4)
  1. SPIRIVA [Suspect]
     Indication: CHRONIC OBSTRUCTIVE PULMONARY DISEASE
     Dosage: 18 MCG
     Route: 055
     Dates: start: 20040101
  2. SPIRIVA [Suspect]
     Dosage: 18 MCG
     Route: 055
  3. OXYGEN [Concomitant]
  4. XANAX [Concomitant]
     Indication: ANXIETY
     Dosage: 2 MG
     Route: 048

REACTIONS (1)
  - DRUG INEFFECTIVE [None]
